FAERS Safety Report 15268788 (Version 1)
Quarter: 2018Q3

REPORT INFORMATION
  Report Type: Other
  Country: DE (occurrence: DE)
  Receive Date: 20180813
  Receipt Date: 20180813
  Transmission Date: 20181010
  Serious: Yes (Congenital Anomaly)
  Sender: FDA-Public Use
  Company Number: DE-DEXPHARM-20180573

PATIENT
  Sex: Male
  Weight: 3.05 kg

DRUGS (4)
  1. DICLOFENAC [Suspect]
     Active Substance: DICLOFENAC
  2. PSEUDOEPHEDRINE [Suspect]
     Active Substance: PSEUDOEPHEDRINE
  3. AMPICILLIN [Suspect]
     Active Substance: AMPICILLIN
  4. SULBACTAM [Suspect]
     Active Substance: SULBACTAM

REACTIONS (3)
  - Cardiac septal defect [Unknown]
  - Foetal exposure during pregnancy [Unknown]
  - Kidney duplex [Unknown]
